FAERS Safety Report 4835265-5 (Version None)
Quarter: 2005Q4

REPORT INFORMATION
  Report Type: 
  Country: None (occurrence: None)
  Receive Date: 20051122
  Receipt Date: 20051117
  Transmission Date: 20060501
  Serious: Yes (Disabling)
  Sender: FDA-Public Use
  Company Number: US-MERCK-0511USA03223

PATIENT
  Sex: Male
  Weight: 98 kg

DRUGS (1)
  1. VIOXX [Suspect]
     Route: 048
     Dates: start: 19980101

REACTIONS (4)
  - ALCOHOLISM [None]
  - CEREBROVASCULAR ACCIDENT [None]
  - DEPRESSION [None]
  - OVERDOSE [None]
